FAERS Safety Report 4878805-2 (Version None)
Quarter: 2006Q1

REPORT INFORMATION
  Report Type: 
  Country: None (occurrence: None)
  Receive Date: 20060112
  Receipt Date: 20051130
  Transmission Date: 20060701
  Serious: No
  Sender: FDA-Public Use
  Company Number: US-GLAXOSMITHKLINE-A0585180A

PATIENT
  Age: 50 Year
  Sex: Female

DRUGS (1)
  1. BEXXAR [Suspect]
     Indication: ACCIDENTAL EXPOSURE
     Route: 062

REACTIONS (12)
  - ASTHENIA [None]
  - DISORIENTATION [None]
  - DRY SKIN [None]
  - FAECES DISCOLOURED [None]
  - FATIGUE [None]
  - HAIR TEXTURE ABNORMAL [None]
  - HYPERSOMNIA [None]
  - IRRITABILITY [None]
  - MICTURITION URGENCY [None]
  - NAUSEA [None]
  - PSYCHOMOTOR HYPERACTIVITY [None]
  - TREMOR [None]
